FAERS Safety Report 7776595-7 (Version None)
Quarter: 2011Q3

REPORT INFORMATION
  Report Type: 
  Country: None (occurrence: None)
  Receive Date: 20110926
  Receipt Date: 20110913
  Transmission Date: 20111222
  Serious: Yes (Disabling)
  Sender: FDA-Public Use
  Company Number: US-UCBSA-041254

PATIENT
  Sex: Female
  Weight: 63.64 kg

DRUGS (5)
  1. ACTOS [Concomitant]
  2. PROVERA [Concomitant]
  3. ESTRACE [Concomitant]
  4. VIMPAT [Suspect]
     Indication: CONVULSION
     Route: 048
     Dates: start: 20101025, end: 20110913
  5. SPIRONOLACTONE [Concomitant]

REACTIONS (1)
  - THROMBOSIS [None]
